FAERS Safety Report 17226050 (Version 1)
Quarter: 2020Q1

REPORT INFORMATION
  Report Type: Report from Study
  Country: US (occurrence: US)
  Receive Date: 20200102
  Receipt Date: 20200102
  Transmission Date: 20200409
  Serious: Yes (Other)
  Sender: FDA-Public Use
  Company Number: US-PFIZER INC-2019311260

PATIENT
  Age: 47 Year
  Sex: Female

DRUGS (2)
  1. IBRANCE [Suspect]
     Active Substance: PALBOCICLIB
     Indication: BREAST CANCER FEMALE
     Dosage: 125 MG, CYCLIC (125 MG, FOR 21 DAYS, THEN 7 DAYS OFF)
     Route: 048
     Dates: start: 20190613, end: 20190627
  2. IBRANCE [Suspect]
     Active Substance: PALBOCICLIB
     Dosage: 100 MG, CYCLIC ( 21 DAY ON, 7 DAYS OFF)
     Route: 048
     Dates: start: 20190711

REACTIONS (2)
  - Haemorrhagic diathesis [Unknown]
  - Leukopenia [Recovering/Resolving]

NARRATIVE: CASE EVENT DATE: 2019
